FAERS Safety Report 8658374 (Version 19)
Quarter: 2015Q2

REPORT INFORMATION
  Report Type: Report from Study
  Country: CA (occurrence: CA)
  Receive Date: 20120710
  Receipt Date: 20150511
  Transmission Date: 20150821
  Serious: Yes (Hospitalization, Other)
  Sender: FDA-Public Use
  Company Number: CA-ROCHE-1001306

PATIENT
  Age: 64 Year
  Sex: Female
  Weight: 74 kg

DRUGS (17)
  1. ACTEMRA [Suspect]
     Active Substance: TOCILIZUMAB
     Indication: RHEUMATOID ARTHRITIS
     Route: 042
     Dates: start: 20110419
  2. ACTEMRA [Suspect]
     Active Substance: TOCILIZUMAB
     Route: 042
     Dates: start: 20120627
  3. ACTEMRA [Suspect]
     Active Substance: TOCILIZUMAB
     Route: 042
     Dates: start: 20140408
  4. ACTEMRA [Suspect]
     Active Substance: TOCILIZUMAB
     Dosage: 31/MAR/2015
     Route: 042
     Dates: start: 20140506
  5. VITAMIN B12 [Concomitant]
     Active Substance: CYANOCOBALAMIN
     Route: 065
  6. ACTEMRA [Suspect]
     Active Substance: TOCILIZUMAB
     Route: 042
     Dates: start: 20130208
  7. TYLENOL [Concomitant]
     Active Substance: ACETAMINOPHEN
     Route: 065
  8. FOLIC ACID. [Concomitant]
     Active Substance: FOLIC ACID
     Route: 065
  9. COUMADIN [Concomitant]
     Active Substance: WARFARIN SODIUM
     Route: 065
  10. PREDNISONE. [Concomitant]
     Active Substance: PREDNISONE
     Route: 065
  11. PANTOLOC [Concomitant]
     Active Substance: PANTOPRAZOLE SODIUM
     Route: 065
  12. LOPRESSOR [Concomitant]
     Active Substance: METOPROLOL TARTRATE
     Route: 065
  13. FOSAMAX [Concomitant]
     Active Substance: ALENDRONATE SODIUM
     Route: 065
  14. VITAMIN A [Concomitant]
     Active Substance: VITAMIN A
     Route: 065
  15. ACTEMRA [Suspect]
     Active Substance: TOCILIZUMAB
     Route: 042
     Dates: start: 20121212
  16. SIMVASTATIN. [Concomitant]
     Active Substance: SIMVASTATIN
     Route: 065
  17. METHOTREXATE [Concomitant]
     Active Substance: METHOTREXATE
     Route: 065

REACTIONS (27)
  - Haemoglobin decreased [Not Recovered/Not Resolved]
  - Tooth abscess [Recovering/Resolving]
  - Tympanic membrane perforation [Unknown]
  - Hiatus hernia strangulated [Unknown]
  - Poor dental condition [Recovered/Resolved]
  - Nasopharyngitis [Recovering/Resolving]
  - Heart rate decreased [Not Recovered/Not Resolved]
  - Arthralgia [Not Recovered/Not Resolved]
  - Arthralgia [Not Recovered/Not Resolved]
  - Hiatus hernia [Recovered/Resolved]
  - Heart rate increased [Recovering/Resolving]
  - Oropharyngeal pain [Unknown]
  - Myalgia [Unknown]
  - Lung disorder [Unknown]
  - Rhinitis [Not Recovered/Not Resolved]
  - Blood pressure decreased [Unknown]
  - International normalised ratio increased [Recovered/Resolved]
  - Mass [Recovered/Resolved]
  - Fungal infection [Recovered/Resolved]
  - Blood pressure increased [Not Recovered/Not Resolved]
  - Abdominal discomfort [Unknown]
  - Arthralgia [Unknown]
  - Cystitis [Recovered/Resolved]
  - Otitis media acute [Unknown]
  - International normalised ratio decreased [Unknown]
  - Dysphonia [Not Recovered/Not Resolved]
  - Drug ineffective [Unknown]

NARRATIVE: CASE EVENT DATE: 201205
